FAERS Safety Report 7353628-3 (Version None)
Quarter: 2011Q1

REPORT INFORMATION
  Report Type: 
  Country: None (occurrence: None)
  Receive Date: 20110303
  Receipt Date: 20100415
  Transmission Date: 20110831
  Serious: Yes (Hospitalization)
  Sender: FDA-Public Use
  Company Number: US-004318

PATIENT
  Age: 36 Year
  Sex: Female

DRUGS (20)
  1. ERYTHROPOIETIN (ERYTHROPOIETIN) [Concomitant]
  2. PROMETHAZINE [Concomitant]
  3. MAXALT (RIZATRIPTAN) [Concomitant]
  4. DICYCLOMINE [Concomitant]
  5. PREVACID [Concomitant]
  6. TOPAMAX [Concomitant]
  7. NITROGLYCERIN [Concomitant]
  8. ALBUTEROL [Concomitant]
  9. HUMIRA [Concomitant]
  10. SERTRALINE (SERTRALINE) [Concomitant]
  11. CELEBREX [Concomitant]
  12. ISOVUE-300 [Suspect]
     Indication: COMPUTERISED TOMOGRAM ABDOMEN
     Dosage: 100ML ONCE INTRAVENOUS (NOT OTHERWISE SPECIFIED)
     Route: 042
     Dates: start: 20100409, end: 20100409
  13. ISOVUE-300 [Suspect]
     Indication: ABDOMINAL PAIN
     Dosage: 100ML ONCE INTRAVENOUS (NOT OTHERWISE SPECIFIED)
     Route: 042
     Dates: start: 20100409, end: 20100409
  14. PREDNISONE TAB [Concomitant]
  15. NYSTATIN [Concomitant]
  16. ASPIRIN [Concomitant]
  17. METOCLOPRAMIDE [Concomitant]
  18. TRAMADOL HCL [Concomitant]
  19. DEPO-PROVERA [Concomitant]
  20. NORTRIPTYLINE (NORTRIPTYLINE) [Concomitant]

REACTIONS (2)
  - DYSPNOEA [None]
  - CHEST DISCOMFORT [None]
